FAERS Safety Report 5031594-3 (Version None)
Quarter: 2006Q2

REPORT INFORMATION
  Report Type: 
  Country: None (occurrence: None)
  Receive Date: 20060616
  Receipt Date: 20060607
  Transmission Date: 20061013
  Serious: Yes (Disabling)
  Sender: FDA-Public Use
  Company Number: 226082

PATIENT
  Age: 54 Year
  Sex: Male

DRUGS (8)
  1. RITUXAN [Suspect]
     Indication: RHEUMATOID ARTHRITIS
  2. SOLU-MEDROL [Concomitant]
  3. PREDNISONE [Concomitant]
  4. IMURAN [Concomitant]
  5. ASPIRIN [Concomitant]
  6. PRILOSEC [Concomitant]
  7. ACETAMINOPHEN [Concomitant]
  8. CODEINE [Concomitant]

REACTIONS (1)
  - ARTHRITIS [None]
